FAERS Safety Report 11660515 (Version 2)
Quarter: 2016Q1

REPORT INFORMATION
  Report Type: Spontaneous
  Country: US (occurrence: US)
  Receive Date: 20151026
  Receipt Date: 20160118
  Transmission Date: 20160525
  Serious: No
  Sender: FDA-Public Use
  Company Number: US-ROXANE LABORATORIES, INC.-2015-RO-01729RO

PATIENT
  Sex: Male

DRUGS (1)
  1. FLUTICASONE [Suspect]
     Active Substance: FLUTICASONE\FLUTICASONE PROPIONATE
     Indication: PRODUCT USED FOR UNKNOWN INDICATION
     Route: 045

REACTIONS (3)
  - Sinusitis [Unknown]
  - Product quality issue [Unknown]
  - Drug ineffective [Unknown]
